FAERS Safety Report 10022180 (Version 1)
Quarter: 2014Q1

REPORT INFORMATION
  Report Type: Spontaneous
  Country: JP (occurrence: JP)
  Receive Date: 20140319
  Receipt Date: 20140319
  Transmission Date: 20141002
  Serious: Yes (Other)
  Sender: FDA-Public Use
  Company Number: JP-GLAXOSMITHKLINE-B0976532A

PATIENT
  Age: 4 Decade
  Sex: Male

DRUGS (5)
  1. RELENZA [Suspect]
     Indication: INFLUENZA
     Dosage: 10MG TWICE PER DAY
     Route: 055
     Dates: start: 20140306, end: 20140310
  2. ANTIPYRETICS [Concomitant]
     Route: 065
  3. ANTITUSSIVES [Concomitant]
     Route: 065
  4. ANALGESICS [Concomitant]
  5. ANTI-INFLAMMATORY AGENTS [Concomitant]

REACTIONS (1)
  - Deafness [Unknown]
